FAERS Safety Report 9158017 (Version 2)
Quarter: 2013Q1

REPORT INFORMATION
  Report Type: Spontaneous
  Country: US (occurrence: None)
  Receive Date: 20130211
  Receipt Date: 20130226
  Transmission Date: 20140127
  Serious: Yes (Other)
  Sender: FDA-Public Use
  Company Number: A1010692A

PATIENT
  Age: 71 Year
  Sex: Female

DRUGS (3)
  1. SODIUM FLUORIDE + POTASSIUM NITRATE [Suspect]
     Indication: SENSITIVITY OF TEETH
     Dosage: UNK/UNKNOWN/DENTAL
     Route: 004
     Dates: start: 201301
  2. ANBESOL [Concomitant]
  3. COLGATE SENSITIVITY TOOTHPA [Concomitant]

REACTIONS (3)
  - Toothache [None]
  - Abscess oral [None]
  - Sensitivity of teeth [None]
